FAERS Safety Report 8491845-X (Version None)
Quarter: 2012Q3

REPORT INFORMATION
  Report Type: 
  Country: None (occurrence: None)
  Receive Date: 20120706
  Receipt Date: 20110708
  Transmission Date: 20120928
  Serious: No
  Sender: FDA-Public Use
  Company Number: US-GLAXOSMITHKLINE-A0936054A

PATIENT
  Age: 4 Year
  Sex: Male

DRUGS (4)
  1. FLOVENT [Suspect]
     Indication: ASTHMA
     Dosage: 1PUFF TWICE PER DAY
     Route: 055
     Dates: start: 20110501
  2. CETIRIZINE [Concomitant]
  3. BENADRYL [Concomitant]
  4. PROVENTIL [Concomitant]

REACTIONS (1)
  - IRRITABILITY [None]
